FAERS Safety Report 5109232-0 (Version None)
Quarter: 2006Q3

REPORT INFORMATION
  Report Type: 
  Country: None (occurrence: None)
  Receive Date: 20060918
  Receipt Date: 20060911
  Transmission Date: 20061208
  Serious: Yes (Hospitalization)
  Sender: FDA-Public Use
  Company Number: S06-USA-03634-01

PATIENT
  Age: 46 Year
  Sex: Male

DRUGS (7)
  1. LEXAPRO [Suspect]
     Indication: ADJUSTMENT DISORDER WITH DEPRESSED MOOD
     Dosage: 140 MG ONCE PO
     Route: 048
     Dates: start: 20060905, end: 20060905
  2. LEXAPRO [Suspect]
     Indication: ADJUSTMENT DISORDER WITH DEPRESSED MOOD
     Dosage: 10 MG QD PO
     Route: 048
     Dates: start: 20031201, end: 20040101
  3. LEXAPRO [Suspect]
     Indication: ADJUSTMENT DISORDER WITH DEPRESSED MOOD
     Dosage: 20 MG QD PO
     Route: 048
     Dates: start: 20040101
  4. HYDROCHLOROTHIAZDE TAB [Concomitant]
  5. ATENOLOL [Concomitant]
  6. ACCUPRIL [Concomitant]
  7. AMITRIPTYLINE HCL [Concomitant]

REACTIONS (5)
  - ACCIDENTAL OVERDOSE [None]
  - LETHARGY [None]
  - MEDICATION ERROR [None]
  - NAUSEA [None]
  - RENAL IMPAIRMENT [None]
